FAERS Safety Report 18881205 (Version 3)
Quarter: 2021Q1

REPORT INFORMATION
  Report Type: Spontaneous
  Country: JP (occurrence: JP)
  Receive Date: 20210211
  Receipt Date: 20210309
  Transmission Date: 20210420
  Serious: Yes (Other)
  Sender: FDA-Public Use
  Company Number: JP-PFIZER INC-2021112481

PATIENT
  Sex: Female

DRUGS (5)
  1. SOLANAX [Suspect]
     Active Substance: ALPRAZOLAM
     Indication: ILLNESS
     Dosage: 0.4 MG, 2X/DAY
     Route: 048
  2. SOLANAX [Suspect]
     Active Substance: ALPRAZOLAM
     Indication: ANXIETY DISORDER
     Dosage: 3 DF, DAILY (IN THE MORNING, NOON AND EVENING)
     Route: 048
  3. RIZE [Suspect]
     Active Substance: CLOTIAZEPAM
     Dosage: 1 DF, 1X/DAY
     Route: 048
  4. SOLANAX [Suspect]
     Active Substance: ALPRAZOLAM
     Indication: INSOMNIA
  5. SOLANAX [Suspect]
     Active Substance: ALPRAZOLAM
     Indication: BLOOD PRESSURE INCREASED

REACTIONS (4)
  - Loss of consciousness [Unknown]
  - Fall [Unknown]
  - Arthralgia [Unknown]
  - Dizziness [Unknown]

NARRATIVE: CASE EVENT DATE: 20210202
